FAERS Safety Report 4415059-5 (Version None)
Quarter: 2004Q3

REPORT INFORMATION
  Report Type: 
  Country: None (occurrence: None)
  Receive Date: 20040729
  Receipt Date: 20040723
  Transmission Date: 20050211
  Serious: Yes (Death, Life-Threatening, Hospitalization)
  Sender: FDA-Public Use
  Company Number: PERC20040028

PATIENT
  Age: 37 Year
  Sex: Female

DRUGS (2)
  1. OXYCODONE AND ACETAMINOPHEN [Suspect]
  2. PHENTERMINE                UNK           UNKNOWN [Suspect]

REACTIONS (1)
  - MULTIPLE DRUG OVERDOSE [None]
